FAERS Safety Report 9366873 (Version 2)
Quarter: 2013Q3

REPORT INFORMATION
  Report Type: Spontaneous
  Country: US (occurrence: US)
  Receive Date: 20130625
  Receipt Date: 20130802
  Transmission Date: 20140515
  Serious: Yes (Hospitalization)
  Sender: FDA-Public Use
  Company Number: US-GLAXOSMITHKLINE-A1027834A

PATIENT
  Age: 76 Year
  Sex: Male

DRUGS (15)
  1. ADVAIR [Suspect]
     Indication: CHRONIC OBSTRUCTIVE PULMONARY DISEASE
     Dosage: 1PUFF AS REQUIRED
     Route: 055
     Dates: start: 201201
  2. ALBUTEROL [Concomitant]
  3. ALFUZOSIN [Concomitant]
  4. ASPIRIN [Concomitant]
  5. LESCOL [Concomitant]
  6. PREVACID [Concomitant]
  7. LISINOPRIL [Concomitant]
  8. MAGNESIUM OXIDE [Concomitant]
  9. METOPROLOL [Concomitant]
  10. SINGULAIR [Concomitant]
  11. MULTIVITAMIN [Concomitant]
  12. PREDNISONE [Concomitant]
  13. FINASTERIDE [Concomitant]
  14. SYMBICORT [Concomitant]
  15. OXYGEN THERAPY [Concomitant]

REACTIONS (4)
  - Chronic obstructive pulmonary disease [Unknown]
  - Dyspnoea [Recovering/Resolving]
  - Oropharyngeal pain [Unknown]
  - Product quality issue [Unknown]
